FAERS Safety Report 5399099-8 (Version None)
Quarter: 2007Q3

REPORT INFORMATION
  Report Type: 
  Country: None (occurrence: None)
  Receive Date: 20070727
  Receipt Date: 20070307
  Transmission Date: 20080115
  Serious: No
  Sender: FDA-Public Use
  Company Number: A0637191A

PATIENT
  Age: 78 Year
  Sex: Female
  Weight: 40 kg

DRUGS (5)
  1. LOTRONEX [Suspect]
     Indication: IRRITABLE BOWEL SYNDROME
     Dosage: 1MG TWICE PER DAY
     Route: 048
     Dates: start: 20060201, end: 20060101
  2. COLESTID [Concomitant]
  3. LOMOTIL [Concomitant]
  4. IMODIUM [Concomitant]
  5. CAPTOPRIL [Concomitant]

REACTIONS (2)
  - DIARRHOEA [None]
  - DRUG INEFFECTIVE [None]
